FAERS Safety Report 6643637-1 (Version None)
Quarter: 2010Q1

REPORT INFORMATION
  Report Type: 
  Country: None (occurrence: None)
  Receive Date: 20100320
  Receipt Date: 20100315
  Transmission Date: 20100710
  Serious: Yes (Life-Threatening, Hospitalization, Other)
  Sender: FDA-Public Use
  Company Number: JP-JNJFOC-20100202623

PATIENT
  Sex: Female

DRUGS (3)
  1. FENTANYL [Suspect]
     Indication: OSTEOARTHRITIS
     Route: 062
  2. FENTANYL [Suspect]
     Indication: PAIN
     Route: 062
  3. FENTANYL [Suspect]
     Route: 062

REACTIONS (7)
  - ACUTE RESPIRATORY DISTRESS SYNDROME [None]
  - ASPIRATION [None]
  - EXPOSURE TO EXTREME TEMPERATURE [None]
  - LOSS OF CONSCIOUSNESS [None]
  - NEAR DROWNING [None]
  - OFF LABEL USE [None]
  - PNEUMONIA [None]
